FAERS Safety Report 21018339 (Version 1)
Quarter: 2022Q2

REPORT INFORMATION
  Report Type: Spontaneous
  Country: JP (occurrence: JP)
  Receive Date: 20220628
  Receipt Date: 20220628
  Transmission Date: 20220720
  Serious: Yes (Other)
  Sender: FDA-Public Use
  Company Number: JP-TEVA-2022-JP-2049773

PATIENT
  Age: 31 Year
  Sex: Female

DRUGS (10)
  1. PREDNISOLONE [Suspect]
     Active Substance: PREDNISOLONE
     Indication: Systemic lupus erythematosus
     Dosage: 30 MILLIGRAM DAILY;
     Route: 065
  2. PREDNISOLONE [Suspect]
     Active Substance: PREDNISOLONE
     Indication: Antiphospholipid antibodies positive
     Dosage: 15 MILLIGRAM DAILY; TAPERED OVER 10 WEEKS
     Route: 065
  3. WARFARIN [Suspect]
     Active Substance: WARFARIN
     Indication: Antiphospholipid syndrome
     Dosage: 5 MILLIGRAM DAILY;
     Route: 065
  4. WARFARIN [Suspect]
     Active Substance: WARFARIN
     Indication: Systemic lupus erythematosus
  5. HYDROXYCHLOROQUINE [Suspect]
     Active Substance: HYDROXYCHLOROQUINE
     Indication: Antiphospholipid syndrome
     Dosage: 200 MILLIGRAM DAILY;
     Route: 065
  6. HYDROXYCHLOROQUINE [Suspect]
     Active Substance: HYDROXYCHLOROQUINE
     Indication: Systemic lupus erythematosus
  7. ASPIRIN [Suspect]
     Active Substance: ASPIRIN
     Indication: Antiphospholipid syndrome
     Dosage: LOW DOSE, 81 MG
     Route: 065
  8. ASPIRIN [Suspect]
     Active Substance: ASPIRIN
     Indication: Systemic lupus erythematosus
  9. INSULIN NOS [Suspect]
     Active Substance: INSULIN NOS
     Indication: Glucose tolerance impaired
     Route: 065
  10. PRAVASTATIN [Suspect]
     Active Substance: PRAVASTATIN
     Indication: Pre-eclampsia
     Dosage: 10 MILLIGRAM DAILY;
     Route: 048

REACTIONS (3)
  - Glucose tolerance impaired [Unknown]
  - Maternal exposure during pregnancy [Unknown]
  - Normal newborn [Unknown]
